FAERS Safety Report 6993957 (Version 2)
Quarter: 2015Q2

REPORT INFORMATION
  Report Type: Spontaneous
  Country: IT (occurrence: None)
  Receive Date: 20090506
  Receipt Date: 20150403
  Transmission Date: 20150821
  Serious: Yes (Hospitalization)
  Sender: FDA-Public Use
  Company Number: 256484

PATIENT
  Age: 49 Year
  Sex: Female

DRUGS (4)
  1. PACLITAXEL. [Suspect]
     Active Substance: PACLITAXEL
     Indication: OVARIAN CANCER
     Dosage: 330 MG MILLIGRAM(S), CYCLICAL?
     Route: 042
     Dates: start: 20090417, end: 20090417
  2. DECADRON [Concomitant]
     Active Substance: DEXAMETHASONE
  3. ZOFRAN /00955301/ [Concomitant]
     Active Substance: ONDANSETRON HYDROCHLORIDE
  4. TRIMETON [Concomitant]
     Active Substance: CHLORPHENIRAMINE MALEATE

REACTIONS (7)
  - Hypersensitivity [None]
  - Hyperhidrosis [None]
  - Vomiting [None]
  - Blood pressure decreased [None]
  - Infusion related reaction [None]
  - Pulse absent [None]
  - Pallor [None]

NARRATIVE: CASE EVENT DATE: 20090417
